FAERS Safety Report 22016964 (Version 3)
Quarter: 2023Q1

REPORT INFORMATION
  Report Type: Report from Study
  Country: US (occurrence: None)
  Receive Date: 20230221
  Receipt Date: 20230324
  Transmission Date: 20230418
  Serious: Yes (Hospitalization)
  Sender: FDA-Public Use
  Company Number: US-ROCHE-3285897

PATIENT
  Age: 68 Year
  Sex: Male

DRUGS (22)
  1. FARICIMAB [Suspect]
     Active Substance: FARICIMAB
     Indication: Age-related macular degeneration
     Dosage: DOSE LAST STUDY DRUG ADMIN PRIOR AE AND SAE 6MG?START DATE AND END DATE OF MOST RECENT DOSE OF STUDY
     Route: 050
     Dates: start: 20211227
  2. FARICIMAB [Suspect]
     Active Substance: FARICIMAB
     Indication: Age-related macular degeneration
     Dosage: DOSE LAST STUDY DRUG ADMIN PRIOR TO AE AND SAE 6MG?START DATE OF MOST RECENT DOSE OF STUDY DRUG PRIO
     Route: 050
  3. RANIBIZUMAB [Suspect]
     Active Substance: RANIBIZUMAB
     Indication: Age-related macular degeneration
     Dosage: DOSE LAST STUDY DRUG ADMIN PRIOR AE AND SAE : 6 MG ?START DATE OF MOST RECENT DOSE OF STUDY DRUG PRI
     Route: 050
     Dates: start: 20220126
  4. FLUTICASONE [Concomitant]
     Active Substance: FLUTICASONE
     Indication: Hypersensitivity
     Route: 055
     Dates: start: 2017
  5. MONTELUKAST [Concomitant]
     Active Substance: MONTELUKAST SODIUM
     Indication: Chronic obstructive pulmonary disease
     Route: 048
     Dates: start: 2017
  6. OMEPRAZOLE [Concomitant]
     Active Substance: OMEPRAZOLE
     Indication: Gastrooesophageal reflux disease
     Route: 048
     Dates: start: 2019
  7. SYMBICORT [Concomitant]
     Active Substance: BUDESONIDE\FORMOTEROL FUMARATE DIHYDRATE
     Indication: Chronic obstructive pulmonary disease
     Route: 055
     Dates: start: 2017
  8. LIPOSOMAL VITAMIN C [Concomitant]
     Route: 048
     Dates: start: 20211104
  9. ACETAMINOPHEN [Concomitant]
     Active Substance: ACETAMINOPHEN
     Dates: start: 20221203
  10. ALBUTEROL [Concomitant]
     Active Substance: ALBUTEROL
     Indication: Chronic obstructive pulmonary disease
     Route: 055
     Dates: start: 20221203
  11. TIOTROPIUM BROMIDE MONOHYDRATE [Concomitant]
     Active Substance: TIOTROPIUM BROMIDE MONOHYDRATE
     Indication: Chronic obstructive pulmonary disease
     Route: 055
     Dates: start: 20221203
  12. SODIUM CHLORIDE [Concomitant]
     Active Substance: SODIUM CHLORIDE
     Indication: Dehydration
     Route: 045
     Dates: start: 20230126, end: 20230203
  13. CIPROFLOXACIN [Concomitant]
     Active Substance: CIPROFLOXACIN
     Indication: Colitis
     Route: 042
     Dates: start: 20230123, end: 20230126
  14. DIPHENHYDRAMINE [Concomitant]
     Active Substance: DIPHENHYDRAMINE
     Indication: Hypersensitivity
     Route: 048
     Dates: start: 20230123, end: 20230126
  15. ENOXAPARIN [Concomitant]
     Active Substance: ENOXAPARIN
     Route: 058
     Dates: start: 20230125, end: 20230202
  16. DILAUDID [Concomitant]
     Active Substance: HYDROMORPHONE HYDROCHLORIDE
     Route: 042
     Dates: start: 20230123, end: 20230202
  17. HYDROXYZINE HYDROCHLORIDE [Concomitant]
     Active Substance: HYDROXYZINE HYDROCHLORIDE
     Indication: Anxiety
     Route: 048
     Dates: start: 20230123, end: 20230202
  18. METOCLOPRAMIDE [Concomitant]
     Active Substance: METOCLOPRAMIDE
     Route: 042
     Dates: start: 20230123, end: 20230125
  19. METRONIDAZOLE [Concomitant]
     Active Substance: METRONIDAZOLE
     Indication: Colitis
     Route: 042
     Dates: start: 20230123, end: 20230126
  20. ZOFRAN [Concomitant]
     Active Substance: ONDANSETRON HYDROCHLORIDE
     Route: 042
     Dates: start: 20230123, end: 20230202
  21. PREDNISONE [Concomitant]
     Active Substance: PREDNISONE
     Indication: Colitis
     Route: 048
     Dates: start: 20230202
  22. GUAIFENESIN [Concomitant]
     Active Substance: GUAIFENESIN
     Route: 048
     Dates: start: 20230124, end: 20230202

REACTIONS (2)
  - Chest pain [Not Recovered/Not Resolved]
  - Starvation [Not Recovered/Not Resolved]

NARRATIVE: CASE EVENT DATE: 20221203
